FAERS Safety Report 11753309 (Version 1)
Quarter: 2015Q4

REPORT INFORMATION
  Report Type: Report from Study
  Country: BR (occurrence: BR)
  Receive Date: 20151119
  Receipt Date: 20151119
  Transmission Date: 20160304
  Serious: Yes (Life-Threatening, Hospitalization, Other)
  Sender: FDA-Public Use
  Company Number: PHHY2014BR009734

PATIENT
  Age: 49 Year
  Sex: Female
  Weight: 65 kg

DRUGS (6)
  1. CERAZETTE [Concomitant]
     Active Substance: DESOGESTREL
     Indication: AMENORRHOEA
     Dosage: 1 DF, QD: START DATE: 14 YEARS AO
     Route: 048
  2. RIVOTRIL [Concomitant]
     Active Substance: CLONAZEPAM
     Indication: SLEEP DISORDER
     Dosage: 1 DF, QD: START DATE: 2 YEARS AGO
     Route: 048
  3. SOLU-MEDROL [Suspect]
     Active Substance: METHYLPREDNISOLONE SODIUM SUCCINATE
     Indication: MULTIPLE SCLEROSIS RELAPSE
     Dosage: 100 OT, QD
     Route: 042
     Dates: start: 1996
  4. NATALIZUMAB [Suspect]
     Active Substance: NATALIZUMAB
     Dosage: 1 DF, QMO
     Route: 065
     Dates: start: 201504
  5. GILENYA [Suspect]
     Active Substance: FINGOLIMOD HYDROCHLORIDE
     Indication: MULTIPLE SCLEROSIS
     Dosage: 0.5 MG, QD
     Route: 048
     Dates: start: 20131010
  6. NATALIZUMAB [Suspect]
     Active Substance: NATALIZUMAB
     Indication: PRODUCT USED FOR UNKNOWN INDICATION
     Dosage: 1 DF, QMO
     Route: 065
     Dates: start: 201503

REACTIONS (20)
  - Laryngeal oedema [Recovered/Resolved]
  - Speech disorder [Recovering/Resolving]
  - Dysphagia [Recovering/Resolving]
  - Limb discomfort [Unknown]
  - Cardiac disorder [Not Recovered/Not Resolved]
  - Tachycardia [Recovered/Resolved]
  - Muscular weakness [Unknown]
  - Weight decreased [Recovered/Resolved]
  - Dyspnoea [Not Recovered/Not Resolved]
  - Musculoskeletal discomfort [Unknown]
  - Dry skin [Not Recovered/Not Resolved]
  - Hypokinesia [Not Recovered/Not Resolved]
  - Nausea [Unknown]
  - Palpitations [Unknown]
  - Cough [Not Recovered/Not Resolved]
  - Feeling abnormal [Unknown]
  - Pruritus genital [Recovering/Resolving]
  - Genital pain [Recovered/Resolved]
  - Multiple sclerosis relapse [Recovered/Resolved]
  - Choking [Recovering/Resolving]

NARRATIVE: CASE EVENT DATE: 201401
